FAERS Safety Report 9839882 (Version 1)
Quarter: 2014Q1

REPORT INFORMATION
  Report Type: Spontaneous
  Country: US (occurrence: US)
  Receive Date: 20140124
  Receipt Date: 20140124
  Transmission Date: 20141002
  Serious: No
  Sender: FDA-Public Use
  Company Number: US-009507513-1312USA012567

PATIENT
  Sex: Female

DRUGS (1)
  1. DULERA [Suspect]
     Dosage: 2 PUFFS TWICE DAILY
     Route: 055
     Dates: start: 201206

REACTIONS (4)
  - Incorrect dose administered [Unknown]
  - Product quality issue [Unknown]
  - Drug dispensing error [Unknown]
  - No adverse event [Unknown]
